FAERS Safety Report 18812766 (Version 1)
Quarter: 2021Q1

REPORT INFORMATION
  Report Type: Spontaneous
  Country: CN (occurrence: CN)
  Receive Date: 20210131
  Receipt Date: 20210131
  Transmission Date: 20210419
  Serious: Yes (Other)
  Sender: FDA-Public Use
  Company Number: CN-AMGEN-CHNSP2021013579

PATIENT
  Age: 40 Year
  Sex: Male

DRUGS (1)
  1. REPATHA [Suspect]
     Active Substance: EVOLOCUMAB
     Indication: LIPIDS INCREASED
     Dosage: UNK
     Route: 065

REACTIONS (3)
  - Hypoaesthesia [Recovered/Resolved]
  - Cerebral ischaemia [Unknown]
  - Muscular weakness [Unknown]
